FAERS Safety Report 7171143-7 (Version None)
Quarter: 2010Q4

REPORT INFORMATION
  Report Type: 
  Country: None (occurrence: None)
  Receive Date: 20101217
  Receipt Date: 20101213
  Transmission Date: 20110411
  Serious: Yes (Other)
  Sender: FDA-Public Use
  Company Number: TR-ROXANE LABORATORIES, INC.-2010-RO-01684RO

PATIENT
  Age: 44 Year
  Sex: Female

DRUGS (1)
  1. RISPERIDONE [Suspect]
     Indication: SCHIZOPHRENIA

REACTIONS (4)
  - AMENORRHOEA [None]
  - GALACTORRHOEA [None]
  - HYPERPROLACTINAEMIA [None]
  - SCHIZOPHRENIA [None]
